FAERS Safety Report 11879230 (Version 3)
Quarter: 2016Q1

REPORT INFORMATION
  Report Type: Spontaneous
  Country: US (occurrence: US)
  Receive Date: 20151230
  Receipt Date: 20160115
  Transmission Date: 20160526
  Serious: Yes (Hospitalization)
  Sender: FDA-Public Use
  Company Number: US-PFIZER INC-2015427597

PATIENT
  Age: 74 Year
  Sex: Male
  Weight: 96.62 kg

DRUGS (5)
  1. LOSARTAN. [Concomitant]
     Active Substance: LOSARTAN
     Indication: HYPERTENSION
     Dosage: 50 MG, DAILY
     Route: 048
  2. LYRICA [Suspect]
     Active Substance: PREGABALIN
     Dosage: 150 MG, 2X/DAY
     Dates: start: 201512
  3. LYRICA [Suspect]
     Active Substance: PREGABALIN
     Indication: FIBROMYALGIA
     Dosage: 75 MG, 3X/DAY
     Route: 048
  4. LYRICA [Suspect]
     Active Substance: PREGABALIN
     Dosage: 150 MG, 2X/DAY(TWO 75MG CAPSULE TWO TIMES A DAY: TWO IN THE MORNING AND TWO IN THE EVENING)
     Route: 048
  5. LORAZEPAM. [Concomitant]
     Active Substance: LORAZEPAM
     Indication: STRESS
     Dosage: 0.5 MG, 2X/DAY
     Route: 048

REACTIONS (10)
  - Fibromyalgia [Recovering/Resolving]
  - Paraesthesia [Not Recovered/Not Resolved]
  - Renal pain [Recovering/Resolving]
  - Dehydration [Unknown]
  - Condition aggravated [Recovering/Resolving]
  - Dizziness [Recovering/Resolving]
  - Drug ineffective [Unknown]
  - Feeling abnormal [Unknown]
  - Pain in extremity [Unknown]
  - Blood pressure increased [Recovered/Resolved]

NARRATIVE: CASE EVENT DATE: 20151202
